FAERS Safety Report 14443893 (Version 1)
Quarter: 2018Q1

REPORT INFORMATION
  Report Type: Spontaneous
  Country: US (occurrence: US)
  Receive Date: 20180125
  Receipt Date: 20180125
  Transmission Date: 20180509
  Serious: Yes (Other)
  Sender: FDA-Public Use
  Company Number: None

PATIENT
  Age: 77 Year
  Sex: Male
  Weight: 76.4 kg

DRUGS (1)
  1. ROCURONIUM [Suspect]
     Active Substance: ROCURONIUM BROMIDE
     Indication: PREOPERATIVE CARE
     Route: 042
     Dates: start: 20180122, end: 20180122

REACTIONS (2)
  - Drug ineffective [None]
  - Manufacturing materials issue [None]

NARRATIVE: CASE EVENT DATE: 20180122
